FAERS Safety Report 4265553-5 (Version None)
Quarter: 2004Q1

REPORT INFORMATION
  Report Type: 
  Country: None (occurrence: None)
  Receive Date: 20040106
  Receipt Date: 20031223
  Transmission Date: 20041129
  Serious: Yes (Hospitalization)
  Sender: FDA-Public Use
  Company Number: K200301933

PATIENT
  Age: 37 Year
  Sex: Female
  Weight: 60 kg

DRUGS (5)
  1. SEPTRA [Suspect]
     Indication: PROPHYLAXIS
     Dosage: 15 MG/KG,QD, INTRAVENOUS
     Route: 042
  2. AMPHOTERICIN B [Concomitant]
  3. ACETAMINOPEN (PARACETAMOL) [Concomitant]
  4. IBUPROFEN [Concomitant]
  5. DIPHENHYDRAMINE HCL [Concomitant]

REACTIONS (15)
  - ANAEMIA [None]
  - BLOOD ALBUMIN DECREASED [None]
  - BLOOD CREATININE INCREASED [None]
  - HISTOPLASMOSIS [None]
  - HYPERKALAEMIA [None]
  - HYPOCALCAEMIA [None]
  - LEUKOPENIA [None]
  - NEPHROPATHY TOXIC [None]
  - PANCREATITIS ACUTE [None]
  - RALES [None]
  - TACHYCARDIA [None]
  - TACHYPNOEA [None]
  - THROMBOCYTOPENIA [None]
  - TREMOR [None]
  - URINARY TRACT INFECTION [None]
